FAERS Safety Report 24718034 (Version 1)
Quarter: 2024Q4

REPORT INFORMATION
  Report Type: Spontaneous
  Country: US (occurrence: US)
  Receive Date: 20241210
  Receipt Date: 20241210
  Transmission Date: 20250115
  Serious: Yes (Other)
  Sender: Hindustan Unilever
  Company Number: US-Hindustan Unilever Limited-2166844

PATIENT
  Age: 43 Year
  Sex: Male

DRUGS (1)
  1. DOVE ADVANCED CARE LAVENDER FRESH 48H ANTIPERSPIRANT [Suspect]
     Active Substance: ALUMINUM ZIRCONIUM TETRACHLOROHYDREX GLY
     Dates: start: 20241115, end: 20241118

REACTIONS (3)
  - Skin irritation [Unknown]
  - Abscess [Unknown]
  - Furuncle [Unknown]

NARRATIVE: CASE EVENT DATE: 20241115
